FAERS Safety Report 10523843 (Version 1)
Quarter: 2014Q4

REPORT INFORMATION
  Report Type: Spontaneous
  Country: US (occurrence: None)
  Receive Date: 20141015
  Receipt Date: 20141015
  Transmission Date: 20150528
  Serious: Yes (Hospitalization, Disabling)
  Sender: FDA-Public Use
  Company Number: None

PATIENT
  Age: 62 Year
  Sex: Female
  Weight: 72.12 kg

DRUGS (6)
  1. RECLAST [Suspect]
     Active Substance: ZOLEDRONIC ACID
     Indication: OSTEOPOROSIS
     Route: 042
     Dates: end: 201303
  2. MULTI VITAMIN [Concomitant]
     Active Substance: VITAMINS
  3. SIMVASTATIN. [Concomitant]
     Active Substance: SIMVASTATIN
  4. BUSPARIN [Concomitant]
  5. AMITRIPTYLINE [Concomitant]
     Active Substance: AMITRIPTYLINE
  6. V-B12 V-D [Concomitant]

REACTIONS (3)
  - Jaw disorder [None]
  - Dysphagia [None]
  - Bone disorder [None]

NARRATIVE: CASE EVENT DATE: 20140124
